FAERS Safety Report 5324145-7 (Version None)
Quarter: 2007Q2

REPORT INFORMATION
  Report Type: 
  Country: None (occurrence: None)
  Receive Date: 20070514
  Receipt Date: 20070202
  Transmission Date: 20071010
  Serious: No
  Sender: FDA-Public Use
  Company Number: A0638213A

PATIENT
  Age: 80 Year
  Sex: Female

DRUGS (1)
  1. RELAFEN [Suspect]
     Indication: OSTEOARTHRITIS
     Route: 048

REACTIONS (1)
  - DRUG INEFFECTIVE [None]
